FAERS Safety Report 6569110-7 (Version None)
Quarter: 2010Q1

REPORT INFORMATION
  Report Type: 
  Country: None (occurrence: None)
  Receive Date: 20100203
  Receipt Date: 20100126
  Transmission Date: 20100710
  Serious: Yes (Other)
  Sender: FDA-Public Use
  Company Number: US-JNJCH-2010002913

PATIENT
  Age: 45 Year
  Sex: Female
  Weight: 82.6 kg

DRUGS (9)
  1. BENADRYL ALLERGY QUICK DISSOLVE STRIPS [Suspect]
     Indication: HYPERSENSITIVITY
     Dosage: TEXT:1 STRIP ONCE
     Route: 048
     Dates: start: 20100124, end: 20100124
  2. PREDNISONE [Concomitant]
     Indication: HYPERSENSITIVITY
     Dosage: TEXT:50MG 1X DAILY
     Route: 065
  3. CHERATUSSIN COUGH SYRUP [Concomitant]
     Indication: COUGH
     Dosage: TEXT:240MG 1X DAILY
     Route: 048
  4. EPIPEN [Concomitant]
     Indication: HYPERSENSITIVITY
     Dosage: TEXT:WHEN NEEDED
     Route: 065
  5. IBUPROFEN [Concomitant]
     Indication: PAIN
     Dosage: TEXT:800MG 2X WEEKELY
     Route: 065
  6. PHENTERMINE [Concomitant]
     Indication: DRUG USE FOR UNKNOWN INDICATION
     Dosage: TEXT:18.5MG 3X WEEKLY
     Route: 065
  7. ZOLPIDEM [Concomitant]
     Indication: SLEEP DISORDER
     Dosage: TEXT:10MG 2X WEEKLY
     Route: 065
  8. BUPROPION [Concomitant]
     Indication: ANXIETY
     Dosage: TEXT:150MG 2X DAILY
     Route: 065
  9. ALPRAZOLAM [Concomitant]
     Indication: ANXIETY
     Dosage: TEXT:.25MG WHEN NEEDED
     Route: 065

REACTIONS (3)
  - DRUG INEFFECTIVE FOR UNAPPROVED INDICATION [None]
  - LIP SWELLING [None]
  - SWOLLEN TONGUE [None]
